FAERS Safety Report 23178356 (Version 1)
Quarter: 2023Q4

REPORT INFORMATION
  Report Type: Spontaneous
  Country: US (occurrence: None)
  Receive Date: 20231113
  Receipt Date: 20231113
  Transmission Date: 20240110
  Serious: Yes (Hospitalization)
  Sender: FDA-Public Use
  Company Number: None

PATIENT
  Sex: Female

DRUGS (2)
  1. INLYTA [Suspect]
     Active Substance: AXITINIB
     Indication: Embolism
     Dosage: FREQUENCY : TWICE A DAY;?
     Route: 048
     Dates: start: 202304
  2. INLYTA [Suspect]
     Active Substance: AXITINIB
     Indication: Deep vein thrombosis

REACTIONS (3)
  - Weight decreased [None]
  - Oropharyngeal pain [None]
  - Oral pain [None]
